FAERS Safety Report 7808096-1 (Version None)
Quarter: 2011Q4

REPORT INFORMATION
  Report Type: 
  Country: None (occurrence: None)
  Receive Date: 20111011
  Receipt Date: 20110926
  Transmission Date: 20120403
  Serious: Yes (Hospitalization, Other)
  Sender: FDA-Public Use
  Company Number: ES-ROCHE-1000068

PATIENT
  Age: 62 Year
  Sex: Male

DRUGS (5)
  1. PEGASYS [Suspect]
     Indication: HEPATITIS C
     Route: 058
     Dates: start: 20101214, end: 20110511
  2. TORSEMIDE [Concomitant]
     Indication: HYPERTENSION
     Route: 048
     Dates: end: 20110511
  3. OMEPRAZOLE [Concomitant]
     Route: 048
  4. TELMISARTAN [Concomitant]
     Indication: HYPERTENSION
     Route: 048
  5. COPEGUS [Suspect]
     Indication: HEPATITIS C
     Route: 048
     Dates: start: 20101214, end: 20110511

REACTIONS (1)
  - HAEMOPHILIA A WITH ANTI FACTOR VIII [None]
